FAERS Safety Report 21025654 (Version 5)
Quarter: 2022Q4

REPORT INFORMATION
  Report Type: Spontaneous
  Country: US (occurrence: US)
  Receive Date: 20220630
  Receipt Date: 20221207
  Transmission Date: 20230113
  Serious: Yes (Hospitalization)
  Sender: FDA-Public Use
  Company Number: US-SANOFI-01165150

PATIENT
  Age: 85 Year
  Sex: Male

DRUGS (5)
  1. XYZAL ALLERGY 24HR [Suspect]
     Active Substance: LEVOCETIRIZINE DIHYDROCHLORIDE
     Dosage: UNK
     Route: 065
  2. MUCINEX [Concomitant]
     Active Substance: GUAIFENESIN
  3. XYZAL [Concomitant]
     Active Substance: LEVOCETIRIZINE DIHYDROCHLORIDE
  4. DRAMAMINE [Concomitant]
     Active Substance: DIMENHYDRINATE
     Dosage: UNK
  5. FLONASPRAY [Concomitant]

REACTIONS (5)
  - Balance disorder [Not Recovered/Not Resolved]
  - Dizziness [Unknown]
  - Onychoclasis [Not Recovered/Not Resolved]
  - Impaired driving ability [Unknown]
  - Drug ineffective [Unknown]
